FAERS Safety Report 4336644-5 (Version None)
Quarter: 2004Q2

REPORT INFORMATION
  Report Type: 
  Country: None (occurrence: None)
  Receive Date: 20040412
  Receipt Date: 20040401
  Transmission Date: 20050107
  Serious: Yes (Hospitalization)
  Sender: FDA-Public Use
  Company Number: PL-MERCK-0404POL00001

PATIENT
  Age: 58 Year
  Sex: Male
  Weight: 70 kg

DRUGS (7)
  1. ASPIRIN [Concomitant]
     Indication: CORONARY ARTERY DISEASE
     Route: 048
     Dates: start: 20040117
  2. ASPIRIN [Concomitant]
     Indication: CORONARY ANGIOPLASTY
     Route: 048
     Dates: start: 20040117
  3. CILAZAPRIL [Concomitant]
     Indication: MYOCARDIAL INFARCTION
     Route: 048
     Dates: start: 20040117
  4. CILAZAPRIL [Concomitant]
     Indication: CORONARY ARTERY DISEASE
     Route: 048
     Dates: start: 20040117
  5. ZOCOR [Suspect]
     Indication: CORONARY ANGIOPLASTY
     Route: 048
     Dates: start: 20040117, end: 20040220
  6. TICLOPIDINE HYDROCHLORIDE [Concomitant]
     Indication: CORONARY ANGIOPLASTY
     Route: 048
     Dates: start: 20040117, end: 20040220
  7. TICLOPIDINE HYDROCHLORIDE [Concomitant]
     Indication: CORONARY ARTERY DISEASE
     Route: 048
     Dates: start: 20040117, end: 20040220

REACTIONS (2)
  - BILE DUCT OBSTRUCTION [None]
  - JAUNDICE [None]
